FAERS Safety Report 8559495-4 (Version None)
Quarter: 2012Q3

REPORT INFORMATION
  Report Type: 
  Country: None (occurrence: None)
  Receive Date: 20120802
  Receipt Date: 20120724
  Transmission Date: 20120928
  Serious: Yes (Hospitalization)
  Sender: FDA-Public Use
  Company Number: US-JNJFOC-20120712734

PATIENT
  Age: 27 Year
  Sex: Male

DRUGS (4)
  1. CLONAZEPAM [Concomitant]
     Route: 048
  2. RISPERIDONE [Concomitant]
     Dosage: (BED TIME)
     Route: 048
  3. BENZTROPINE MESYLATE [Concomitant]
     Route: 048
  4. INVEGA SUSTENNA [Suspect]
     Indication: SCHIZOPHRENIA
     Route: 030
     Dates: start: 20120401, end: 20120720

REACTIONS (1)
  - PSYCHOTIC DISORDER [None]
